FAERS Safety Report 10131664 (Version 3)
Quarter: 2014Q2

REPORT INFORMATION
  Report Type: Report from Study
  Country: GB (occurrence: GB)
  Receive Date: 20140428
  Receipt Date: 20140501
  Transmission Date: 20141212
  Serious: Yes (Hospitalization)
  Sender: FDA-Public Use
  Company Number: GB-TEVA-472973ISR

PATIENT
  Age: 75 Year
  Sex: Male
  Weight: 65 kg

DRUGS (6)
  1. CUSTIRSEN [Suspect]
     Indication: PROSTATE CANCER
     Dosage: STUDY DRUG INTERRUPTED ON UNSPECIFIED DATE
     Route: 042
     Dates: start: 20140110
  2. CABAZITAXEL [Suspect]
     Indication: PROSTATE CANCER
     Route: 042
     Dates: start: 20140117, end: 2014
  3. LOPERAMIDE [Suspect]
     Indication: DIARRHOEA
     Route: 048
     Dates: start: 20140215
  4. DICLOFENAC [Concomitant]
     Indication: PAIN
     Route: 048
     Dates: start: 2013
  5. ORAMORPH [Concomitant]
     Indication: PAIN
     Dosage: 2.5 TO 5ML
     Route: 048
     Dates: start: 2013
  6. ZOLADEX [Concomitant]
     Indication: PROSTATE CANCER
     Route: 058
     Dates: start: 201106

REACTIONS (2)
  - Urinary tract infection [Recovered/Resolved]
  - Constipation [Recovered/Resolved]
